FAERS Safety Report 7013179-2 (Version None)
Quarter: 2010Q3

REPORT INFORMATION
  Report Type: 
  Country: None (occurrence: None)
  Receive Date: 20100924
  Receipt Date: 20100913
  Transmission Date: 20110219
  Serious: Yes (Hospitalization)
  Sender: FDA-Public Use
  Company Number: ES-GENENTECH-288793

PATIENT
  Sex: Female
  Weight: 55 kg

DRUGS (11)
  1. RITUXIMAB [Suspect]
     Indication: LYMPHOCYTIC LEUKAEMIA
     Dosage: 780 MG, UNK
     Route: 042
     Dates: start: 20081210
  2. RITUXIMAB [Suspect]
     Dosage: 375 MG/M2, Q2M
     Route: 042
  3. CYCLOPHOSPHAMIDE [Suspect]
     Indication: LYMPHOCYTIC LEUKAEMIA
     Dosage: 195 MG, UNK
     Route: 042
     Dates: start: 20081210
  4. FLUDARABINE [Suspect]
     Indication: LYMPHOCYTIC LEUKAEMIA
     Dosage: 19.5 MG, UNK
     Route: 042
     Dates: start: 20081210
  5. BISOPROLOL FUMARATE [Concomitant]
     Indication: PRODUCT USED FOR UNKNOWN INDICATION
     Dosage: UNK
     Dates: start: 20060505
  6. SULFATE FERREUX [Concomitant]
     Indication: PRODUCT USED FOR UNKNOWN INDICATION
     Dosage: UNK
     Dates: start: 20090608
  7. ATORVASTATIN [Concomitant]
     Indication: PRODUCT USED FOR UNKNOWN INDICATION
     Dosage: UNK
     Dates: start: 20081213
  8. OMEPRAZOLE [Concomitant]
     Indication: PRODUCT USED FOR UNKNOWN INDICATION
     Dosage: UNK
     Dates: start: 20081203
  9. ALDACTONE [Concomitant]
     Indication: PRODUCT USED FOR UNKNOWN INDICATION
     Dosage: UNK
     Dates: start: 20081203
  10. TORASEMIDE [Concomitant]
     Indication: PRODUCT USED FOR UNKNOWN INDICATION
     Dosage: UNK
     Dates: start: 20081203
  11. ACENOCOUMAROL [Concomitant]
     Indication: PRODUCT USED FOR UNKNOWN INDICATION
     Dosage: UNK
     Dates: start: 20090506

REACTIONS (1)
  - FEBRILE NEUTROPENIA [None]
